FAERS Safety Report 9466941 (Version 4)
Quarter: 2014Q1

REPORT INFORMATION
  Report Type: Report from Study
  Country: FR (occurrence: FR)
  Receive Date: 20130820
  Receipt Date: 20140212
  Transmission Date: 20141002
  Serious: Yes (Other)
  Sender: FDA-Public Use
  Company Number: FR-EXELIXIS-XL18413003127

PATIENT
  Age: 64 Year
  Sex: Male
  Weight: 63 kg

DRUGS (9)
  1. XL184 [Suspect]
     Indication: PROSTATE CANCER
     Dosage: 60 MG, QD
     Route: 048
     Dates: start: 20130227, end: 2013
  2. XL184 [Suspect]
     Dosage: 40 MG, QD
     Route: 048
     Dates: start: 2013, end: 20130809
  3. XL184 [Suspect]
     Indication: PROSTATE CANCER
     Dosage: 5 MG, BID
     Route: 048
     Dates: start: 20130227
  4. DURAGESIC [Concomitant]
  5. OXYNORM [Concomitant]
  6. ENANTONE [Concomitant]
  7. BICARBONATE [Concomitant]
  8. CLINITREN [Concomitant]
  9. NEORECORMON [Concomitant]

REACTIONS (2)
  - Visual acuity reduced [Recovered/Resolved]
  - Uveitis [Not Recovered/Not Resolved]
